FAERS Safety Report 10057469 (Version 3)
Quarter: 2014Q2

REPORT INFORMATION
  Report Type: Spontaneous
  Country: US (occurrence: US)
  Receive Date: 20140403
  Receipt Date: 20140508
  Transmission Date: 20141212
  Serious: No
  Sender: FDA-Public Use
  Company Number: US-RB-065411-14

PATIENT
  Age: 73 Year
  Sex: Female

DRUGS (1)
  1. MUCINEX FAST MAX SEVERE, COLD, FLU, AND SORE THROAT LIQUID [Suspect]
     Indication: PRODUCT USED FOR UNKNOWN INDICATION
     Dosage: STOPPED TAKING PRODUCT ON 22-APR-2014. TOOK RECOMMENDED DOSAGE
     Route: 048
     Dates: start: 20140417

REACTIONS (2)
  - Blood pressure increased [Recovered/Resolved]
  - Sedation [Unknown]
